FAERS Safety Report 12927657 (Version 6)
Quarter: 2017Q3

REPORT INFORMATION
  Report Type: Report from Study
  Country: US (occurrence: US)
  Receive Date: 20161109
  Receipt Date: 20170822
  Transmission Date: 20171127
  Serious: Yes (Hospitalization, Other)
  Sender: FDA-Public Use
  Company Number: PHEH2015US002417

PATIENT
  Age: 43 Year
  Sex: Female

DRUGS (2)
  1. FENTANYL. [Suspect]
     Active Substance: FENTANYL
     Indication: PROCEDURAL PAIN
     Dosage: UNK
     Route: 065
  2. GILENYA [Suspect]
     Active Substance: FINGOLIMOD HYDROCHLORIDE
     Indication: PRODUCT USED FOR UNKNOWN INDICATION
     Dosage: UNK
     Route: 065
     Dates: start: 20110101

REACTIONS (12)
  - Intervertebral disc degeneration [Unknown]
  - Vertigo [Unknown]
  - Overdose [Unknown]
  - Pain [Recovered/Resolved]
  - Head injury [Unknown]
  - Weight decreased [Unknown]
  - Fall [Unknown]
  - Back pain [Unknown]
  - Procedural pain [Unknown]
  - Dizziness [Unknown]
  - Night blindness [Unknown]
  - Rotator cuff syndrome [Unknown]

NARRATIVE: CASE EVENT DATE: 20150129
